FAERS Safety Report 20027218 (Version 1)
Quarter: 2021Q4

REPORT INFORMATION
  Report Type: Other
  Country: IT (occurrence: IT)
  Receive Date: 20211103
  Receipt Date: 20211103
  Transmission Date: 20220304
  Serious: Yes (Hospitalization, Other)
  Sender: FDA-Public Use
  Company Number: None

PATIENT

DRUGS (3)
  1. DECA-DURABOLIN [Suspect]
     Active Substance: NANDROLONE DECANOATE
     Indication: Substance use
     Dosage: UNK
     Route: 065
     Dates: end: 20211008
  2. TESTOSTERONE ACETATE [Suspect]
     Active Substance: TESTOSTERONE ACETATE
     Indication: Substance use
     Dosage: UNK
     Route: 065
     Dates: end: 20211008
  3. COMIRNATY [Suspect]
     Active Substance: TOZINAMERAN
     Indication: COVID-19 immunisation
     Dosage: 1 DOSAGE FORM, CYCLICAL
     Route: 030
     Dates: start: 20211009, end: 20211009

REACTIONS (3)
  - Drug abuse [Unknown]
  - Chest pain [Not Recovered/Not Resolved]
  - Acute myocardial infarction [Not Recovered/Not Resolved]

NARRATIVE: CASE EVENT DATE: 20211015
